FAERS Safety Report 7472326-9 (Version None)
Quarter: 2011Q1

REPORT INFORMATION
  Report Type: 
  Country: None (occurrence: None)
  Receive Date: 20110302
  Receipt Date: 20101111
  Transmission Date: 20110831
  Serious: Yes (Other)
  Sender: FDA-Public Use
  Company Number: 163-21880-10100280

PATIENT
  Age: 77 Year
  Sex: Female

DRUGS (1)
  1. REVLIMID [Suspect]
     Indication: MULTIPLE MYELOMA
     Dosage: 7.5 MG, 1 IN 2 D, PO
     Route: 048
     Dates: start: 20100826

REACTIONS (3)
  - PANCYTOPENIA [None]
  - TREATMENT NONCOMPLIANCE [None]
  - DRUG DISPENSING ERROR [None]
